FAERS Safety Report 5252393-3 (Version None)
Quarter: 2007Q1

REPORT INFORMATION
  Report Type: 
  Country: None (occurrence: None)
  Receive Date: 20070301
  Receipt Date: 20061031
  Transmission Date: 20070707
  Serious: No
  Sender: FDA-Public Use
  Company Number: US-BRISTOL-MYERS SQUIBB COMPANY-13561774

PATIENT
  Age: 70 Year
  Sex: Female
  Weight: 57 kg

DRUGS (1)
  1. TAXOL [Suspect]
     Indication: BREAST CANCER
     Route: 042
     Dates: start: 20060801

REACTIONS (2)
  - HYPOAESTHESIA [None]
  - PARAESTHESIA [None]
